FAERS Safety Report 13020132 (Version 2)
Quarter: 2017Q2

REPORT INFORMATION
  Report Type: Spontaneous
  Country: US (occurrence: US)
  Receive Date: 20161212
  Receipt Date: 20170508
  Transmission Date: 20170830
  Serious: Yes (Hospitalization)
  Sender: FDA-Public Use
  Company Number: US-TEVA-719549USA

PATIENT
  Sex: Female

DRUGS (1)
  1. MUPIROCIN. [Suspect]
     Active Substance: MUPIROCIN
     Indication: NASAL DISCOMFORT
     Dosage: 4 PERCENT DAILY; IN EACH NOSTRIL
     Route: 045

REACTIONS (6)
  - Medication error [Unknown]
  - Cough [Not Recovered/Not Resolved]
  - Wheezing [Not Recovered/Not Resolved]
  - Rhinalgia [Unknown]
  - Nasal discomfort [Unknown]
  - Emphysema [Not Recovered/Not Resolved]

NARRATIVE: CASE EVENT DATE: 2016
